FAERS Safety Report 8596354-5 (Version None)
Quarter: 2012Q3

REPORT INFORMATION
  Report Type: 
  Country: None (occurrence: None)
  Receive Date: 20120807
  Receipt Date: 20120807
  Transmission Date: 20120928
  Serious: Yes (Life-Threatening)
  Sender: FDA-Public Use
  Company Number: None

PATIENT
  Sex: Female

DRUGS (3)
  1. COPAXONE [Suspect]
     Indication: RELAPSING-REMITTING MULTIPLE SCLEROSIS
     Dosage: 20MG ONCE A DAY INJECTION
     Dates: start: 20070701, end: 20111001
  2. SIMVASTATIN [Concomitant]
  3. ZENLAFEXINE C [Concomitant]

REACTIONS (1)
  - MALIGNANT MELANOMA [None]
